FAERS Safety Report 17708157 (Version 1)
Quarter: 2020Q2

REPORT INFORMATION
  Report Type: Report from Study
  Country: CN (occurrence: CN)
  Receive Date: 20200425
  Receipt Date: 20200425
  Transmission Date: 20200714
  Serious: Yes (Other)
  Sender: FDA-Public Use
  Company Number: CN-ROCHE-2589425

PATIENT

DRUGS (2)
  1. TRASTUZUMAB. [Suspect]
     Active Substance: TRASTUZUMAB
     Indication: BREAST CANCER
     Dosage: THE INITIAL DOSE WAS 8 MG/KG, FOLLOWED BY 6 MG/KG
     Route: 041
  2. PACLITAXEL. [Suspect]
     Active Substance: PACLITAXEL
     Indication: BREAST CANCER
     Dosage: 135-175MG/M2, 21 DAYS ONE CYCLE
     Route: 041

REACTIONS (2)
  - Cardiac failure [Unknown]
  - Bone marrow failure [Unknown]
